FAERS Safety Report 13534973 (Version 2)
Quarter: 2017Q3

REPORT INFORMATION
  Report Type: Report from Study
  Country: None (occurrence: GB)
  Receive Date: 20170511
  Receipt Date: 20170911
  Transmission Date: 20171127
  Serious: Yes (Hospitalization)
  Sender: FDA-Public Use
  Company Number: GB-ABBVIE-17K-167-1969592-00

PATIENT
  Sex: Male

DRUGS (2)
  1. FLUCLOXACILLIN [Concomitant]
     Active Substance: FLUCLOXACILLIN
     Indication: PRODUCT USED FOR UNKNOWN INDICATION
     Dates: start: 201705
  2. HUMIRA [Suspect]
     Active Substance: ADALIMUMAB
     Indication: PSORIASIS
     Route: 058
     Dates: start: 201610

REACTIONS (11)
  - Excoriation [Unknown]
  - Psoriasis [Unknown]
  - Eczema infected [Unknown]
  - Pharyngitis [Unknown]
  - Nasopharyngitis [Unknown]
  - Urticaria papular [Unknown]
  - Pustular psoriasis [Unknown]
  - Malaise [Unknown]
  - Adverse drug reaction [Unknown]
  - Folliculitis [Unknown]
  - Parakeratosis [Unknown]
